FAERS Safety Report 17079696 (Version 1)
Quarter: 2019Q4

REPORT INFORMATION
  Report Type: Spontaneous
  Country: US (occurrence: US)
  Receive Date: 20191029
  Receipt Date: 20191029
  Transmission Date: 20200122
  Serious: No
  Sender: FDA-Public Use
  Company Number: None

PATIENT
  Age: 45 Year
  Sex: Female

DRUGS (1)
  1. AUSTEDO [Suspect]
     Active Substance: DEUTETRABENAZINE
     Route: 048
     Dates: start: 20181015

REACTIONS (4)
  - Insurance issue [None]
  - Tremor [None]
  - Therapy cessation [None]
  - Withdrawal syndrome [None]

NARRATIVE: CASE EVENT DATE: 20191029
